FAERS Safety Report 9547181 (Version 1)
Quarter: 2013Q2

REPORT INFORMATION
  Report Type: Spontaneous
  Country: US (occurrence: None)
  Receive Date: 20130606
  Receipt Date: 20130606
  Transmission Date: 20140414
  Serious: Yes (Other)
  Sender: FDA-Public Use
  Company Number: 163-POMAL-13032966

PATIENT
  Age: 67 Year
  Sex: Female

DRUGS (1)
  1. POMALYST (POMALIDOMIDE) (4 MILLIGRAM, CAPSULES) [Suspect]
     Indication: PLASMA CELL MYELOMA
     Dosage: 4 MG, 21 IN 21 D, PO, CAPSULE
     Dates: start: 20130308

REACTIONS (5)
  - Fatigue [None]
  - Haemoglobin decreased [None]
  - Platelet count decreased [None]
  - Pyrexia [None]
  - Rash [None]
